FAERS Safety Report 4951217-9 (Version None)
Quarter: 2006Q1

REPORT INFORMATION
  Report Type: 
  Country: None (occurrence: None)
  Receive Date: 20060313
  Receipt Date: 20060306
  Transmission Date: 20060701
  Serious: Yes (Death, Other)
  Sender: FDA-Public Use
  Company Number: 200515052BCC

PATIENT
  Sex: Female

DRUGS (1)
  1. ALEVE [Suspect]
     Indication: ARTHRALGIA
     Dosage: ORAL
     Route: 048

REACTIONS (3)
  - CARDIAC ARREST [None]
  - EPILEPSY [None]
  - ROAD TRAFFIC ACCIDENT [None]
